FAERS Safety Report 11727672 (Version 1)
Quarter: 2015Q4

REPORT INFORMATION
  Report Type: Spontaneous
  Country: IL (occurrence: IL)
  Receive Date: 20151112
  Receipt Date: 20151112
  Transmission Date: 20160304
  Serious: Yes (Other)
  Sender: FDA-Public Use
  Company Number: IL-SA-2015SA173879

PATIENT
  Age: 68 Year
  Sex: Male

DRUGS (4)
  1. LANTUS SOLOSTAR [Suspect]
     Active Substance: INSULIN GLARGINE
     Indication: TYPE 2 DIABETES MELLITUS
     Dosage: DOSE:60 UNIT(S)
     Route: 065
  2. NOVORAPID [Concomitant]
     Active Substance: INSULIN ASPART
  3. SOLOSTAR [Suspect]
     Active Substance: DEVICE
     Indication: TYPE 2 DIABETES MELLITUS
  4. GLUCOMIN [Concomitant]
     Active Substance: METFORMIN HYDROCHLORIDE

REACTIONS (3)
  - Ankle fracture [Unknown]
  - Glycosylated haemoglobin increased [Unknown]
  - Blood glucose abnormal [Not Recovered/Not Resolved]

NARRATIVE: CASE EVENT DATE: 201508
